FAERS Safety Report 5375167-1 (Version None)
Quarter: 2007Q2

REPORT INFORMATION
  Report Type: 
  Country: None (occurrence: None)
  Receive Date: 20070629
  Receipt Date: 20060724
  Transmission Date: 20071010
  Serious: No
  Sender: FDA-Public Use
  Company Number: US-ASTRAZENECA-2006UW07529

PATIENT
  Sex: Female
  Weight: 51.4 kg

DRUGS (1)
  1. NOLVADEX [Suspect]
     Route: 048
     Dates: start: 20040101

REACTIONS (1)
  - MEDICATION RESIDUE [None]
